FAERS Safety Report 8103067-2 (Version None)
Quarter: 2012Q1

REPORT INFORMATION
  Report Type: 
  Country: None (occurrence: None)
  Receive Date: 20120201
  Receipt Date: 20120123
  Transmission Date: 20120608
  Serious: Yes (Hospitalization, Other)
  Sender: FDA-Public Use
  Company Number: US-BAYER-2011-029568

PATIENT
  Age: 28 Year
  Sex: Female
  Weight: 82 kg

DRUGS (4)
  1. CYMBALTA [Concomitant]
     Dosage: 60 MG, QD
  2. YAZ [Suspect]
     Dosage: UNK UNK, QD
     Dates: start: 20071201
  3. AMBIEN [Concomitant]
     Dosage: 10 MG, PRN
  4. GAVISCON [Concomitant]

REACTIONS (6)
  - INJURY [None]
  - PAIN [None]
  - CHOLECYSTECTOMY [None]
  - GENERAL PHYSICAL HEALTH DETERIORATION [None]
  - CHOLECYSTITIS ACUTE [None]
  - CHOLECYSTITIS CHRONIC [None]
